FAERS Safety Report 4409696-1 (Version None)
Quarter: 2004Q3

REPORT INFORMATION
  Report Type: 
  Country: None (occurrence: None)
  Receive Date: 20040727
  Receipt Date: 20040727
  Transmission Date: 20050211
  Serious: Yes (Hospitalization)
  Sender: FDA-Public Use
  Company Number: None

PATIENT
  Age: 70 Year
  Sex: Male
  Weight: 68.4932 kg

DRUGS (10)
  1. TAXOTERE [Suspect]
     Indication: NON-SMALL CELL LUNG CANCER
     Dosage: 35MG/M2 DAYS 1+8 INTRAVENOUS
     Route: 042
     Dates: start: 20040610, end: 20040708
  2. CARBOPLATIN [Suspect]
     Indication: NON-SMALL CELL LUNG CANCER
     Dosage: AUC 6 DAY 1 Q3WK INTRAVENOUS
     Route: 042
     Dates: start: 20040610, end: 20040701
  3. LANOXIN [Concomitant]
  4. PROSCAR [Concomitant]
  5. LIPITOR [Concomitant]
  6. ASPIRIN [Concomitant]
  7. MULTI-VITAMIN [Concomitant]
  8. DECADRON [Concomitant]
  9. COUMADIN [Concomitant]
  10. COMPAZINE [Concomitant]

REACTIONS (3)
  - HYPERCOAGULATION [None]
  - PERIPHERAL EMBOLISM [None]
  - PERIPHERAL ISCHAEMIA [None]
